FAERS Safety Report 14341711 (Version 2)
Quarter: 2018Q2

REPORT INFORMATION
  Report Type: Spontaneous
  Country: GB (occurrence: GB)
  Receive Date: 20180102
  Receipt Date: 20180406
  Transmission Date: 20180711
  Serious: Yes (Other)
  Sender: FDA-Public Use
  Company Number: GB-TORRENT-00015900

PATIENT
  Sex: Female

DRUGS (1)
  1. ARIPIPRAZOLE. [Suspect]
     Active Substance: ARIPIPRAZOLE
     Indication: SCHIZOAFFECTIVE DISORDER
     Dosage: 1 (TRIMESTER)
     Route: 065
     Dates: start: 2012

REACTIONS (3)
  - Thrombosis [Unknown]
  - Hypersexuality [Unknown]
  - Exposure during pregnancy [Unknown]
